FAERS Safety Report 17052156 (Version 1)
Quarter: 2019Q4

REPORT INFORMATION
  Report Type: Spontaneous
  Country: US (occurrence: US)
  Receive Date: 20191120
  Receipt Date: 20191120
  Transmission Date: 20200122
  Serious: Yes (Other)
  Sender: FDA-Public Use
  Company Number: US-DRREDDYS-USA/USA/19/0116092

PATIENT
  Sex: Female
  Weight: 72.45 kg

DRUGS (1)
  1. RANITIDINE CAPSULES 300 MG [Suspect]
     Active Substance: RANITIDINE
     Indication: GASTROOESOPHAGEAL REFLUX DISEASE
     Route: 048

REACTIONS (4)
  - Memory impairment [Unknown]
  - Bacterial infection [Unknown]
  - Haematuria [Unknown]
  - Pelvic infection [Unknown]
